FAERS Safety Report 8610231-2 (Version None)
Quarter: 2012Q3

REPORT INFORMATION
  Report Type: 
  Country: None (occurrence: None)
  Receive Date: 20120810
  Receipt Date: 20120810
  Transmission Date: 20120928
  Serious: Yes (Life-Threatening)
  Sender: FDA-Public Use
  Company Number: None

PATIENT
  Age: 64 Year
  Sex: Female
  Weight: 59.8748 kg

DRUGS (3)
  1. AVAPRO [Concomitant]
  2. ZOLPIDEM [Suspect]
     Indication: INSOMNIA
     Dosage: 1/2 TABLET AS NEEDED PO 1 1/2 YEARS
     Route: 048
  3. CRESTOR [Concomitant]

REACTIONS (1)
  - ROAD TRAFFIC ACCIDENT [None]
